FAERS Safety Report 17249658 (Version 2)
Quarter: 2020Q1

REPORT INFORMATION
  Report Type: Report from Study
  Country: None (occurrence: US)
  Receive Date: 20200108
  Receipt Date: 20200304
  Transmission Date: 20200409
  Serious: Yes (Other)
  Sender: FDA-Public Use
  Company Number: US-ABBVIE-20K-163-3222763-00

PATIENT
  Sex: Female
  Weight: 108.05 kg

DRUGS (38)
  1. ALPRAZOLAM. [Concomitant]
     Active Substance: ALPRAZOLAM
     Indication: ANXIETY
     Dosage: TAKE ONE TABLET DAILY AS NEEDED
  2. TOPIRAMATE. [Concomitant]
     Active Substance: TOPIRAMATE
     Indication: MIGRAINE PROPHYLAXIS
     Dosage: TAKE ONE TABLET DAILY IN EVENING
  3. FLUTICASONE 50MG SPR MOR [Concomitant]
     Indication: HYPERSENSITIVITY
     Dosage: ONE SPRAYS INTO EACH NOSTRIL DAILY AFTERNOON
     Route: 045
  4. PROMETHAZINE [Concomitant]
     Active Substance: PROMETHAZINE HYDROCHLORIDE
     Indication: MIGRAINE
     Dosage: TAKE ONE TABLET AS NEEDED
  5. DULCOLAX NOS [Concomitant]
     Active Substance: BISACODYL OR DOCUSATE SODIUM
     Indication: CONSTIPATION PROPHYLAXIS
     Dosage: TAKE 2 TAB STOOL SOFTENER NOON AND EVE AND 1 EVERY NIGHT LAXATIVE
  6. HUMIRA [Suspect]
     Active Substance: ADALIMUMAB
     Indication: HIDRADENITIS
     Route: 058
  7. ESTRADIOL. [Concomitant]
     Active Substance: ESTRADIOL
     Indication: HORMONE REPLACEMENT THERAPY
     Dosage: TAKE ONE TABLET DAILY IN EVENING
  8. FLUOXETINE [Concomitant]
     Active Substance: FLUOXETINE HYDROCHLORIDE
     Indication: BIPOLAR I DISORDER
     Dosage: TAKE TWO CAPSULES DAILY IN NIGHT
  9. PROMETHAZINE [Concomitant]
     Active Substance: PROMETHAZINE HYDROCHLORIDE
     Indication: NAUSEA
  10. DULCOLAX NOS [Concomitant]
     Active Substance: BISACODYL OR DOCUSATE SODIUM
     Indication: LAXATIVE SUPPORTIVE CARE
  11. APPLE CIDER VINEGAR [Concomitant]
     Active Substance: APPLE CIDER VINEGAR
     Indication: SUPPLEMENTATION THERAPY
     Dosage: TAKE ONE CAPSULE TWICE DAILY NOON AND EVENING
  12. SIMVASTATIN. [Concomitant]
     Active Substance: SIMVASTATIN
     Indication: BLOOD CHOLESTEROL INCREASED
     Dosage: TAKE ONE TABLET DAILY IN EVENING.
  13. ZYRTEC [Concomitant]
     Active Substance: CETIRIZINE HYDROCHLORIDE
     Indication: HYPERSENSITIVITY
     Dosage: TAKE ONE TABLET DAILY IN MORNING
  14. SYMBICORT [Concomitant]
     Active Substance: BUDESONIDE\FORMOTEROL FUMARATE DIHYDRATE
     Indication: ASTHMA
     Dosage: INHALE TWO PUFFS TWICE DAILY IN MORNING AND AT NIGHT
  15. NARATRIPTAN [Concomitant]
     Active Substance: NARATRIPTAN HYDROCHLORIDE
     Indication: MIGRAINE
     Dosage: TAKE ONE TABLET AT ONSET OF MIGRAINE AS NEEDED
  16. DICYCLOMINE [Concomitant]
     Active Substance: DICYCLOMINE HYDROCHLORIDE
     Indication: IRRITABLE BOWEL SYNDROME
     Dosage: TAKE ONE TABLET TWICE DAILY IN MORNING AND EVENING
  17. VITAMIN B12 [Concomitant]
     Active Substance: CYANOCOBALAMIN
     Indication: VITAMIN B12 DECREASED
     Dosage: TAKE ONE TABLET TWICE DAILY IN NOON.
     Dates: end: 20200102
  18. OLANZAPINE. [Concomitant]
     Active Substance: OLANZAPINE
     Indication: BORDERLINE PERSONALITY DISORDER
     Dosage: TAKE ONE TABLET DAILY IN NIGHT
  19. LISINOPRIL. [Concomitant]
     Active Substance: LISINOPRIL
     Indication: HYPERTENSION
     Dosage: TAKE ONE TABLET DAILY IN MORNING
  20. CLINDAMYCIN 2% CREAM [Concomitant]
     Indication: ACNE
     Dosage: APPLY TO INFECTED AREA ONE DAILY AT NIGHT
  21. SINGULAIR [Concomitant]
     Active Substance: MONTELUKAST SODIUM
     Indication: HYPERSENSITIVITY
     Dosage: TAKE ONE TABLET DAILY IN EVENING
  22. VENTOLIN HFA AER [Concomitant]
     Indication: ASTHMA
     Dosage: INHALE TWO PUFFS EVERY FOUR TO SIX HOURS AS NEEDED
  23. IMIPRAMINE [Concomitant]
     Active Substance: IMIPRAMINE
     Indication: MIGRAINE PROPHYLAXIS
     Dosage: TAKE ONE TABLET DAILY IN NIGHT
  24. DICLOFENAC [Concomitant]
     Active Substance: DICLOFENAC
     Indication: SWELLING
  25. HYDROXYZINE [Concomitant]
     Active Substance: HYDROXYZINE HYDROCHLORIDE
     Indication: ANXIETY
     Dosage: TAKE ONE TABLET THREE TIMES DAILY IN MORNING, NOON AND EVENING
  26. DRAMAMINE [Concomitant]
     Active Substance: DIMENHYDRINATE
     Indication: NAUSEA
     Dosage: TAKE ONE TABLET AS NEEDED
  27. CLONAZEPAM. [Concomitant]
     Active Substance: CLONAZEPAM
     Indication: DEPRESSION
  28. ZOLPIDEM [Concomitant]
     Active Substance: ZOLPIDEM TARTRATE
     Indication: SLEEP TERROR
     Dosage: TAKE ONE TABLET DAILY IN NIGHT
  29. AZELASTINE 0.15% SPR [Concomitant]
     Indication: HYPERSENSITIVITY
     Dosage: TWO SPRAYS INTO EACH NOSTRIL TWICE DAILY
  30. BENADRYL [Concomitant]
     Active Substance: DIPHENHYDRAMINE HYDROCHLORIDE
     Indication: HYPERSENSITIVITY
     Dosage: TAKE ONE TO TWO TABLETS AS NEEDED
  31. CLONAZEPAM. [Concomitant]
     Active Substance: CLONAZEPAM
     Indication: ANXIETY
     Dosage: TAKE ONE TABLET TWICE DAILY IN MORNING AND EVENING
  32. AMMONIUM LAC 12% LOTION [Concomitant]
     Indication: ECZEMA
     Dosage: APPLY TO AFFECTED AREA ONCE DAILY AT NIGHT
  33. GABAPENTIN. [Concomitant]
     Active Substance: GABAPENTIN
     Indication: NERVE BLOCK
     Dosage: TAKE ONE CAPSULE THREE TIMES DAILY IN NOON, EVENING AND AT NIGHT
  34. OLANZAPINE. [Concomitant]
     Active Substance: OLANZAPINE
     Indication: DEPRESSION
  35. CYCLOBENZAPRINE. [Concomitant]
     Active Substance: CYCLOBENZAPRINE
     Indication: MUSCLE SPASMS
     Dosage: TAKE ONE TABLET THREE TIMES DAILY AS NEEDED
  36. PANTOPRAZOLE [Concomitant]
     Active Substance: PANTOPRAZOLE
     Indication: GASTROOESOPHAGEAL REFLUX DISEASE
     Dosage: TAKE ONE TABLET DAILY IN NOON
  37. FAMOTIDINE. [Concomitant]
     Active Substance: FAMOTIDINE
     Indication: GASTROOESOPHAGEAL REFLUX DISEASE
     Dosage: TAKE ONE TO TWO TABLETS DAILY AT NIGHT
  38. DICLOFENAC [Concomitant]
     Active Substance: DICLOFENAC
     Indication: PAIN
     Dosage: TAKE ONE TABLET TWICE DAILY IN MORNING AND EVENING

REACTIONS (5)
  - Paraesthesia [Not Recovered/Not Resolved]
  - Intervertebral disc degeneration [Not Recovered/Not Resolved]
  - Spinal osteoarthritis [Not Recovered/Not Resolved]
  - General physical condition abnormal [Not Recovered/Not Resolved]
  - Pain [Not Recovered/Not Resolved]
